FAERS Safety Report 6371443-4 (Version None)
Quarter: 2009Q3

REPORT INFORMATION
  Report Type: 
  Country: None (occurrence: None)
  Receive Date: 20090923
  Receipt Date: 20071102
  Transmission Date: 20100115
  Serious: Yes (Other)
  Sender: FDA-Public Use
  Company Number: US-ASTRAZENECA-2007UW10160

PATIENT
  Age: 636 Month
  Sex: Female
  Weight: 65.8 kg

DRUGS (32)
  1. SEROQUEL [Suspect]
     Indication: INSOMNIA
     Dosage: STRENGTH 100 MG. DOSE-25-700 MG DAILY
     Route: 048
     Dates: start: 20030610
  2. SEROQUEL [Suspect]
     Indication: BIPOLAR DISORDER
     Dosage: STRENGTH 100 MG. DOSE-25-700 MG DAILY
     Route: 048
     Dates: start: 20030610
  3. SEROQUEL [Suspect]
     Indication: SCHIZOAFFECTIVE DISORDER
     Dosage: STRENGTH 100 MG. DOSE-25-700 MG DAILY
     Route: 048
     Dates: start: 20030610
  4. SEROQUEL [Suspect]
     Dosage: 100 TO 600 MG
     Route: 048
     Dates: start: 20030616, end: 20040910
  5. SEROQUEL [Suspect]
     Dosage: 100 TO 600 MG
     Route: 048
     Dates: start: 20030616, end: 20040910
  6. SEROQUEL [Suspect]
     Dosage: 100 TO 600 MG
     Route: 048
     Dates: start: 20030616, end: 20040910
  7. RISPERDAL [Concomitant]
     Dates: start: 20030301, end: 20040901
  8. ZYPREXA [Concomitant]
     Dates: start: 19970101, end: 19970101
  9. ABILIFY [Concomitant]
     Dosage: STRENGTH-10 MG, 15 MG. DOSE-15 MG DAILY
     Dates: start: 20031204
  10. ABILIFY [Concomitant]
     Dosage: 10-30 MG
     Dates: start: 20031204
  11. CLOZARIL [Concomitant]
  12. GEODON [Concomitant]
  13. HALDOL [Concomitant]
     Dosage: 10-15 MG
     Dates: start: 19910715
  14. HALDOL [Concomitant]
     Dosage: 10-15 MG
     Dates: start: 19910715
  15. NAVANE [Concomitant]
     Indication: HYPERTENSION
  16. STELAZINE [Concomitant]
  17. THORAZINE [Concomitant]
     Indication: MENTAL DISORDER
     Dates: start: 19990101
  18. THORAZINE [Concomitant]
     Dates: start: 19951206
  19. TRILAFON [Concomitant]
     Indication: PARANOIA
     Dosage: STRENGTH 2 MG, 4 MG. DOSE-2-12 MG DAILY
     Route: 048
     Dates: start: 20011108
  20. TRILAFON [Concomitant]
     Dates: start: 20040101
  21. NORVASC [Concomitant]
     Indication: HYPERTENSION
     Dosage: 10-15 MG
     Route: 048
     Dates: start: 19980418
  22. DEPAKOTE ER [Concomitant]
     Dosage: STRENGTH 500 MG. DOSE-400-800 MG
     Dates: start: 20010308
  23. TRILEPTAL [Concomitant]
     Dosage: STRENGTH 300 MG, 600 MG.  DOSE 600-1200 MG DAILY
     Route: 048
     Dates: start: 20031204
  24. BUSPAR [Concomitant]
     Indication: ANXIETY
     Dosage: STRENGTH 10 MG, 15 MG. DOSE-15-45 MG DAILY
     Route: 048
     Dates: start: 20031222
  25. BUSPAR [Concomitant]
     Indication: RESTLESSNESS
     Dosage: STRENGTH 10 MG, 15 MG. DOSE-15-45 MG DAILY
     Route: 048
     Dates: start: 20031222
  26. XANAX [Concomitant]
     Indication: ANXIETY
     Dosage: 0.5-2 MG
     Route: 048
     Dates: start: 20010308
  27. XANAX [Concomitant]
     Indication: RESTLESSNESS
     Dosage: 0.5-2 MG
     Route: 048
     Dates: start: 20010308
  28. ZOLOFT [Concomitant]
     Dates: start: 20011108
  29. PRAVACHOL [Concomitant]
     Dates: start: 20030128
  30. MONOPRIL [Concomitant]
     Indication: BLOOD PRESSURE
     Dosage: 20-40 MG PER DAY
     Route: 048
     Dates: start: 20010308
  31. CARDIZEM [Concomitant]
     Dosage: 180-300 MG, PER DAY
     Route: 048
     Dates: start: 20010308
  32. ASPIRIN [Concomitant]
     Dosage: 81-325 MG, PRE DAY
     Dates: start: 20010409

REACTIONS (4)
  - CATARACT [None]
  - DEPRESSION [None]
  - SUICIDE ATTEMPT [None]
  - TYPE 2 DIABETES MELLITUS [None]
